FAERS Safety Report 6665888-2 (Version None)
Quarter: 2010Q2

REPORT INFORMATION
  Report Type: 
  Country: None (occurrence: None)
  Receive Date: 20100402
  Receipt Date: 20100329
  Transmission Date: 20101027
  Serious: Yes (Other)
  Sender: FDA-Public Use
  Company Number: DE-ROCHE-693718

PATIENT
  Sex: Male

DRUGS (1)
  1. CEFTRIAXONE SODIUM [Suspect]
     Indication: WHIPPLE'S DISEASE
     Dosage: FORM: INFUSION. DOSAGE: 1X2 GRAM. FOR 14 DAYS.
     Route: 042

REACTIONS (1)
  - CHOLECYSTITIS ACUTE [None]
